FAERS Safety Report 4506375-7 (Version None)
Quarter: 2004Q4

REPORT INFORMATION
  Report Type: 
  Country: None (occurrence: None)
  Receive Date: 20041025
  Receipt Date: 20030826
  Transmission Date: 20050328
  Serious: Yes (Other)
  Sender: FDA-Public Use
  Company Number: US-JNJFOC-20030602422

PATIENT
  Age: 76 Year
  Sex: Female
  Weight: 74.3899 kg

DRUGS (6)
  1. REMICADE [Suspect]
     Indication: CROHN'S DISEASE
     Dosage: 5 MG/KG, 1 IN 1 TOTAL, INTRAVENOUS
     Route: 042
     Dates: start: 20030411
  2. PREDNISONE [Concomitant]
  3. COLAZOL (BALSALAZIDE SODIUM) TABLETS [Concomitant]
  4. ATENOL (ATENOLOL) TABLETS [Concomitant]
  5. ROWASA [Concomitant]
  6. SYNTHROID (LEVOTHYROXINE SODIUM) TABLETS [Concomitant]

REACTIONS (2)
  - DEEP VEIN THROMBOSIS [None]
  - MUSCULAR WEAKNESS [None]
